FAERS Safety Report 14747038 (Version 1)
Quarter: 2018Q2

REPORT INFORMATION
  Report Type: Spontaneous
  Country: AT (occurrence: AT)
  Receive Date: 20180411
  Receipt Date: 20180411
  Transmission Date: 20180711
  Serious: Yes (Other)
  Sender: FDA-Public Use
  Company Number: AT-BAYER-2018-066235

PATIENT
  Age: 48 Year
  Sex: Female
  Weight: 94 kg

DRUGS (1)
  1. STIVARGA [Suspect]
     Active Substance: REGORAFENIB
     Indication: HEPATOCELLULAR CARCINOMA
     Dosage: 160 MG, QD
     Dates: start: 20170316, end: 20170930

REACTIONS (15)
  - Product use in unapproved indication [None]
  - Off label use [None]
  - Metastases to lymph nodes [Unknown]
  - Decreased appetite [None]
  - Ascites [Unknown]
  - Alopecia [Unknown]
  - Fatigue [Unknown]
  - Increased tendency to bruise [Unknown]
  - Impaired healing [Unknown]
  - Diarrhoea [Unknown]
  - Palmar-plantar erythrodysaesthesia syndrome [Recovered/Resolved]
  - Nausea [Unknown]
  - Weight decreased [Recovered/Resolved]
  - Hepatocellular carcinoma [Unknown]
  - Dysphonia [Unknown]

NARRATIVE: CASE EVENT DATE: 201704
